FAERS Safety Report 8277797-6 (Version None)
Quarter: 2012Q2

REPORT INFORMATION
  Report Type: 
  Country: None (occurrence: None)
  Receive Date: 20120412
  Receipt Date: 20120403
  Transmission Date: 20120825
  Serious: Yes (Hospitalization, Other)
  Sender: FDA-Public Use
  Company Number: US-BRISTOL-MYERS SQUIBB COMPANY-16500282

PATIENT
  Age: 57 Year
  Sex: Female

DRUGS (4)
  1. COUMADIN [Suspect]
     Indication: PULMONARY HYPERTENSION
  2. ASPIRIN [Suspect]
  3. EPOPROSTENOL SODIUM [Suspect]
     Indication: PULMONARY HYPERTENSION
     Dosage: INJ
     Route: 041
     Dates: start: 20110110
  4. TRACLEER [Suspect]
     Indication: PULMONARY HYPERTENSION
     Route: 048
     Dates: start: 20101204

REACTIONS (6)
  - FALL [None]
  - DIARRHOEA [None]
  - GAIT DISTURBANCE [None]
  - THROMBOCYTOPENIA [None]
  - SUBDURAL HAEMATOMA [None]
  - PAIN IN JAW [None]
